FAERS Safety Report 9494343 (Version 1)
Quarter: 2013Q3

REPORT INFORMATION
  Report Type: Spontaneous
  Country: US (occurrence: US)
  Receive Date: 20130903
  Receipt Date: 20130903
  Transmission Date: 20140515
  Serious: Yes (Other)
  Sender: FDA-Public Use
  Company Number: US-JNJFOC-20130815343

PATIENT
  Age: 41 Year
  Sex: Male
  Weight: 108.86 kg

DRUGS (3)
  1. DURAGESIC [Suspect]
     Indication: PAIN
     Route: 062
     Dates: end: 2003
  2. XANAX [Concomitant]
     Indication: ANXIETY
     Route: 048
  3. VALIUM [Concomitant]
     Indication: MUSCLE RELAXANT THERAPY
     Route: 048
     Dates: start: 2013

REACTIONS (4)
  - Adverse event [Unknown]
  - Spinal operation [Unknown]
  - Pain [Unknown]
  - Product quality issue [Unknown]
